FAERS Safety Report 6957721-6 (Version None)
Quarter: 2010Q3

REPORT INFORMATION
  Report Type: 
  Country: None (occurrence: None)
  Receive Date: 20100831
  Receipt Date: 20100818
  Transmission Date: 20110219
  Serious: Yes (Death, Hospitalization)
  Sender: FDA-Public Use
  Company Number: BR-AMGEN-QUU434263

PATIENT
  Sex: Male
  Weight: 85 kg

DRUGS (10)
  1. ENBREL [Suspect]
     Indication: ANKYLOSING SPONDYLITIS
     Route: 058
     Dates: start: 20070101
  2. ENALAPRIL MALEATE [Concomitant]
     Indication: HYPERTENSION
     Dates: start: 20070101
  3. SIMVASTATIN [Concomitant]
     Indication: BLOOD CHOLESTEROL
     Dates: start: 20000101
  4. MAREVAN [Concomitant]
     Indication: COAGULOPATHY
     Dates: start: 20100701
  5. GLICLAZIDE [Concomitant]
     Indication: DIABETES MELLITUS
     Dates: start: 20070101
  6. METFORMIN HCL [Concomitant]
     Indication: DIABETES MELLITUS
     Dates: start: 20070101
  7. SPIRONOLACTONE [Concomitant]
     Indication: CARDIAC DISORDER
     Dates: start: 20100101
  8. DIGOXIN [Concomitant]
     Indication: CARDIAC DISORDER
     Dates: start: 20100101
  9. SELOZOK [Concomitant]
     Indication: HYPERTENSION
     Dates: start: 20070101
  10. ASPIRIN [Concomitant]
     Indication: COAGULOPATHY
     Dosage: UNSPECIFIED DOSE, ONCE DAILY
     Dates: start: 20000101

REACTIONS (5)
  - ACUTE PULMONARY OEDEMA [None]
  - ATRIAL FLUTTER [None]
  - CARDIAC FAILURE CONGESTIVE [None]
  - CHEST PAIN [None]
  - MUSCLE TWITCHING [None]
